FAERS Safety Report 7400351-2 (Version None)
Quarter: 2011Q2

REPORT INFORMATION
  Report Type: 
  Country: None (occurrence: None)
  Receive Date: 20110407
  Receipt Date: 20110323
  Transmission Date: 20111010
  Serious: Yes (Other)
  Sender: FDA-Public Use
  Company Number: FR-BRISTOL-MYERS SQUIBB COMPANY-15656747

PATIENT
  Age: 45 Year
  Sex: Female

DRUGS (3)
  1. CETUXIMAB [Suspect]
     Indication: ANAL CANCER
     Dosage: MOST RECENT INFU:06APR10
     Route: 042
     Dates: start: 20100323
  2. FLUOROURACIL [Suspect]
     Indication: ANAL CANCER
     Route: 042
  3. CISPLATIN [Suspect]
     Indication: ANAL CANCER
     Route: 042

REACTIONS (1)
  - FEMALE GENITAL TRACT FISTULA [None]
